FAERS Safety Report 19465930 (Version 1)
Quarter: 2021Q2

REPORT INFORMATION
  Report Type: Spontaneous
  Country: DE (occurrence: DE)
  Receive Date: 20210627
  Receipt Date: 20210627
  Transmission Date: 20210717
  Serious: Yes (Hospitalization, Other)
  Sender: FDA-Public Use
  Company Number: NVSC2021DE118688

PATIENT
  Age: 80 Year
  Sex: Female
  Weight: 71 kg

DRUGS (28)
  1. DIOVAN [Suspect]
     Active Substance: VALSARTAN
     Dosage: 160 DF, BID QD (1X 160) (MORNING AND EVENING)
     Route: 065
     Dates: start: 201310
  2. FERROSANOL [Concomitant]
     Active Substance: FERROUS GLUCONATE
     Indication: PRODUCT USED FOR UNKNOWN INDICATION
     Route: 065
  3. EUTHYROX [Concomitant]
     Active Substance: LEVOTHYROXINE SODIUM
     Indication: PRODUCT USED FOR UNKNOWN INDICATION
     Route: 065
  4. DIOVAN [Suspect]
     Active Substance: VALSARTAN
     Indication: PRODUCT USED FOR UNKNOWN INDICATION
     Dosage: 80 DF, QD (1X 80) (MORNING AND IN THE EVENING)
     Route: 065
     Dates: start: 20100122, end: 201302
  5. HALOPERIDOL NEURAXPHARM [Concomitant]
     Active Substance: HALOPERIDOL
     Indication: PRODUCT USED FOR UNKNOWN INDICATION
     Route: 065
  6. MACROGOL ABZ BALANCE [Concomitant]
     Active Substance: POLYETHYLENE GLYCOL 3350\POTASSIUM CHLORIDE\SODIUM BICARBONATE\SODIUM CHLORIDE
     Indication: PRODUCT USED FOR UNKNOWN INDICATION
     Route: 065
  7. FENTANYL CT [Concomitant]
     Indication: PRODUCT USED FOR UNKNOWN INDICATION
     Route: 065
  8. VALSARTAN HEXAL 320 MG FILMTABLETTEN [Suspect]
     Active Substance: VALSARTAN
     Indication: PRODUCT USED FOR UNKNOWN INDICATION
     Dosage: 320 MG, BID ( STOPED ON 12 JUN 2018 BUT ONGOING AT DISCHARGE FROM REHABILITATION) (? A TABLET OF 320
     Route: 048
     Dates: start: 20180523
  9. L?THYROXIN?HENNING [Concomitant]
     Active Substance: LEVOTHYROXINE SODIUM
     Indication: PRODUCT USED FOR UNKNOWN INDICATION
     Route: 065
  10. FUROSEMID [Concomitant]
     Active Substance: FUROSEMIDE
     Indication: PRODUCT USED FOR UNKNOWN INDICATION
     Route: 065
  11. PARACETAMOL [Concomitant]
     Active Substance: ACETAMINOPHEN
     Indication: PRODUCT USED FOR UNKNOWN INDICATION
     Route: 065
  12. HCT HEXAL [Concomitant]
     Active Substance: HYDROCHLOROTHIAZIDE
     Indication: PRODUCT USED FOR UNKNOWN INDICATION
     Route: 065
  13. DIOVAN [Suspect]
     Active Substance: VALSARTAN
     Dosage: 80 DF, QD INCREASED WITH 160
     Route: 065
     Dates: start: 20130215, end: 201310
  14. DIOVAN [Suspect]
     Active Substance: VALSARTAN
     Dosage: UNK
     Route: 065
     Dates: start: 2013, end: 2013
  15. DIOVAN [Suspect]
     Active Substance: VALSARTAN
     Dosage: 160 MG, QD
     Route: 065
     Dates: start: 201302
  16. IBUPROFEN. [Concomitant]
     Active Substance: IBUPROFEN
     Indication: PRODUCT USED FOR UNKNOWN INDICATION
     Route: 065
  17. PANTOPRAZOLE [Concomitant]
     Active Substance: PANTOPRAZOLE
     Indication: PRODUCT USED FOR UNKNOWN INDICATION
     Route: 065
  18. MOMETASONE [Concomitant]
     Active Substance: MOMETASONE
     Indication: PRODUCT USED FOR UNKNOWN INDICATION
     Route: 065
  19. ADVITAN [Concomitant]
     Indication: PRODUCT USED FOR UNKNOWN INDICATION
     Route: 065
  20. DIGIMERCK MINOR [Concomitant]
     Active Substance: DIGITOXIN
     Indication: PRODUCT USED FOR UNKNOWN INDICATION
     Route: 065
  21. TAVOR [Concomitant]
     Indication: PRODUCT USED FOR UNKNOWN INDICATION
     Route: 065
  22. MIDAZOLAM. [Concomitant]
     Active Substance: MIDAZOLAM
     Indication: PRODUCT USED FOR UNKNOWN INDICATION
     Route: 065
  23. BISOPROLOL?RATIOPHARM [Concomitant]
     Active Substance: BISOPROLOL
     Indication: PRODUCT USED FOR UNKNOWN INDICATION
     Route: 065
  24. DIOVAN [Suspect]
     Active Substance: VALSARTAN
     Dosage: 160 MG, QD (2X 80) (MORNING)
     Route: 065
     Dates: start: 20130215, end: 201310
  25. DIOVAN [Suspect]
     Active Substance: VALSARTAN
     Dosage: UNK
     Route: 065
     Dates: start: 2011, end: 2013
  26. DIOVAN [Suspect]
     Active Substance: VALSARTAN
     Dosage: 98 TABLET
     Route: 065
     Dates: start: 20131031
  27. BISOPROLOL COMP [Concomitant]
     Active Substance: BISOPROLOL FUMARATE\HYDROCHLOROTHIAZIDE
     Indication: PRODUCT USED FOR UNKNOWN INDICATION
     Route: 065
  28. HYDROMORPHONE [Concomitant]
     Active Substance: HYDROMORPHONE
     Indication: PRODUCT USED FOR UNKNOWN INDICATION
     Route: 065

REACTIONS (19)
  - Myocardial ischaemia [Unknown]
  - Syncope [Unknown]
  - Supraventricular tachycardia [Unknown]
  - Transient ischaemic attack [Unknown]
  - Ventricular extrasystoles [Unknown]
  - Aphasia [Recovering/Resolving]
  - Confusional state [Unknown]
  - Bradycardia [Unknown]
  - Metastases to central nervous system [Unknown]
  - Cognitive disorder [Recovering/Resolving]
  - Coordination abnormal [Recovering/Resolving]
  - Blood pressure inadequately controlled [Unknown]
  - Cardiac ventricular disorder [Unknown]
  - Memory impairment [Recovering/Resolving]
  - Cardiac failure [Unknown]
  - Left ventricular hypertrophy [Unknown]
  - Atrial fibrillation [Unknown]
  - Aortic dilatation [Unknown]
  - Personality change [Recovering/Resolving]

NARRATIVE: CASE EVENT DATE: 2010
